FAERS Safety Report 6237102-3 (Version None)
Quarter: 2009Q2

REPORT INFORMATION
  Report Type: 
  Country: None (occurrence: None)
  Receive Date: 20090619
  Receipt Date: 20090409
  Transmission Date: 20091009
  Serious: No
  Sender: FDA-Public Use
  Company Number: US-ASTRAZENECA-2009UW08958

PATIENT
  Age: 20122 Day
  Sex: Female
  Weight: 81.6 kg

DRUGS (7)
  1. SYMBICORT [Suspect]
     Route: 055
     Dates: start: 20090403
  2. ATIVAN [Concomitant]
  3. PERINDOPRIL ERBUMINE [Concomitant]
  4. PROBIOTIC [Concomitant]
  5. SERIPHOS [Concomitant]
  6. VITAMIN B-12 [Concomitant]
  7. CALCIUM [Concomitant]

REACTIONS (1)
  - ABDOMINAL PAIN UPPER [None]
